FAERS Safety Report 5169162-5 (Version None)
Quarter: 2006Q4

REPORT INFORMATION
  Report Type: 
  Country: None (occurrence: None)
  Receive Date: 20061201
  Receipt Date: 20061114
  Transmission Date: 20070319
  Serious: Yes (Hospitalization, Other)
  Sender: FDA-Public Use
  Company Number: US-2006-005399

PATIENT
  Age: 32 Year
  Sex: Female
  Weight: 90.7 kg

DRUGS (8)
  1. BETASERON [Suspect]
     Indication: MULTIPLE SCLEROSIS
     Dosage: 8 MIU, EVERY 2D, SUBCUTANEOUS
     Route: 058
     Dates: start: 20051024, end: 20060305
  2. BETASERON [Suspect]
     Indication: MULTIPLE SCLEROSIS
     Dosage: 8 MIU, EVERY 2D, SUBCUTANEOUS
     Route: 058
     Dates: start: 20060418
  3. METHYLPREDNISOLONE INJECTION [Concomitant]
  4. NEURONTIN [Concomitant]
  5. EFFEXOR [Concomitant]
  6. KLONOPIN [Concomitant]
  7. DARVOCET-N (DEXTROPROPOXYPHENE NAPSILATE) [Concomitant]
  8. PROTONIX [Concomitant]

REACTIONS (19)
  - ACUTE MYOCARDIAL INFARCTION [None]
  - ADVERSE DRUG REACTION [None]
  - ALANINE AMINOTRANSFERASE INCREASED [None]
  - ASPARTATE AMINOTRANSFERASE INCREASED [None]
  - BLOOD CHOLESTEROL INCREASED [None]
  - CORONARY ARTERY DISEASE [None]
  - CORONARY ARTERY DISSECTION [None]
  - CORONARY ARTERY STENOSIS [None]
  - CORONARY ARTERY THROMBOSIS [None]
  - GLUCOSE TOLERANCE IMPAIRED [None]
  - HAEMATOCRIT DECREASED [None]
  - HAEMOGLOBIN DECREASED [None]
  - HYPERLIPIDAEMIA [None]
  - LOW DENSITY LIPOPROTEIN INCREASED [None]
  - MYOCARDIAL ISCHAEMIA [None]
  - PROTEIN S DECREASED [None]
  - THERAPY CESSATION [None]
  - URINARY TRACT INFECTION ENTEROCOCCAL [None]
  - VENTRICULAR HYPOKINESIA [None]
